FAERS Safety Report 13872092 (Version 5)
Quarter: 2017Q4

REPORT INFORMATION
  Report Type: Report from Study
  Country: CA (occurrence: CA)
  Receive Date: 20170816
  Receipt Date: 20171026
  Transmission Date: 20180320
  Serious: Yes (Hospitalization, Disabling)
  Sender: FDA-Public Use
  Company Number: CA-AMGEN-CANSL2017122678

PATIENT
  Age: 57 Year
  Sex: Female
  Weight: 76 kg

DRUGS (4)
  1. KYPROLIS [Suspect]
     Active Substance: CARFILZOMIB
     Dosage: 84 MG, UNK CYCLE 3
     Route: 042
     Dates: start: 20170830, end: 20170830
  2. KYPROLIS [Suspect]
     Active Substance: CARFILZOMIB
     Dosage: 108 MG, UNK (CYCLE TWO)
     Route: 042
     Dates: start: 20170804, end: 20170804
  3. KYPROLIS [Suspect]
     Active Substance: CARFILZOMIB
     Indication: PLASMA CELL MYELOMA
     Dosage: 84 MG, UNK (ODX2X3 WEEKS)
     Route: 042
     Dates: start: 20170629, end: 2017
  4. KYPROLIS [Suspect]
     Active Substance: CARFILZOMIB
     Dosage: 84 MG, UNK CYCLE 3, (ODX2X3 WEEKS)
     Route: 042
     Dates: start: 20170831

REACTIONS (4)
  - Hypertension [Not Recovered/Not Resolved]
  - Haemoglobin decreased [Not Recovered/Not Resolved]
  - Fluid retention [Not Recovered/Not Resolved]
  - Fatigue [Not Recovered/Not Resolved]

NARRATIVE: CASE EVENT DATE: 2017
